FAERS Safety Report 7094098-2 (Version None)
Quarter: 2010Q4

REPORT INFORMATION
  Report Type: 
  Country: None (occurrence: None)
  Receive Date: 20101109
  Receipt Date: 20101109
  Transmission Date: 20110411
  Serious: Yes (Life-Threatening, Hospitalization, Disabling, Other)
  Sender: FDA-Public Use
  Company Number: None

PATIENT
  Age: 57 Year
  Sex: Male
  Weight: 63.5036 kg

DRUGS (1)
  1. SULFASALAZINE [Suspect]
     Indication: COLITIS ULCERATIVE
     Dosage: 500MG 4 TIMES A DAY FOR 3 DAYS PO; 1000MG 4 TIMES A DAY STARTING ON THE 4TH DAY
     Route: 048
     Dates: start: 20100916, end: 20101008

REACTIONS (9)
  - BLISTER [None]
  - CHILLS [None]
  - FATIGUE [None]
  - NIGHT SWEATS [None]
  - OCULAR HYPERAEMIA [None]
  - OROPHARYNGEAL PAIN [None]
  - PYREXIA [None]
  - STRESS [None]
  - SWELLING FACE [None]
